FAERS Safety Report 8206379-7 (Version None)
Quarter: 2012Q1

REPORT INFORMATION
  Report Type: 
  Country: None (occurrence: None)
  Receive Date: 20120313
  Receipt Date: 20120308
  Transmission Date: 20120608
  Serious: Yes (Other)
  Sender: FDA-Public Use
  Company Number: PHEH2011US07450

PATIENT
  Sex: Male

DRUGS (3)
  1. EXTAVIA [Suspect]
     Dosage: 0.50 ML, UNK
  2. EXTAVIA [Suspect]
     Dosage: 0.75 ML, UNK
  3. EXTAVIA [Suspect]
     Indication: MULTIPLE SCLEROSIS
     Dosage: 0.125 MG, QOD
     Route: 058
     Dates: start: 20110301

REACTIONS (10)
  - SPINAL COLUMN INJURY [None]
  - SPINAL CORD DISORDER [None]
  - PYREXIA [None]
  - PAIN [None]
  - MOOD ALTERED [None]
  - BACK PAIN [None]
  - GAIT DISTURBANCE [None]
  - OEDEMA PERIPHERAL [None]
  - HYPERHIDROSIS [None]
  - FEELING ABNORMAL [None]
